FAERS Safety Report 21036044 (Version 1)
Quarter: 2022Q3

REPORT INFORMATION
  Report Type: Spontaneous
  Country: US (occurrence: US)
  Receive Date: 20220701
  Receipt Date: 20220701
  Transmission Date: 20221027
  Serious: No
  Sender: FDA-Public Use
  Company Number: US-KRAMERLABS-2022-US-004807

PATIENT
  Age: 39 Year
  Sex: Male
  Weight: 77.11 kg

DRUGS (1)
  1. NIZORAL A-D [Suspect]
     Active Substance: KETOCONAZOLE
     Indication: Pruritus
     Dosage: USED ONCE DAILY FOR ABOUT A MONTH
     Route: 061
     Dates: start: 20180101, end: 20180201

REACTIONS (5)
  - Application site pruritus [Unknown]
  - Intentional product misuse [Recovered/Resolved]
  - Condition aggravated [Unknown]
  - Inappropriate schedule of product administration [Recovered/Resolved]
  - Drug ineffective [Recovered/Resolved]

NARRATIVE: CASE EVENT DATE: 20180101
